FAERS Safety Report 15084836 (Version 1)
Quarter: 2018Q2

REPORT INFORMATION
  Report Type: Spontaneous
  Country: US (occurrence: US)
  Receive Date: 20180628
  Receipt Date: 20180628
  Transmission Date: 20180711
  Serious: Yes (Other)
  Sender: FDA-Public Use
  Company Number: US-NOVOPROD-607167

PATIENT
  Sex: Male

DRUGS (1)
  1. VICTOZA [Suspect]
     Active Substance: LIRAGLUTIDE
     Indication: PRODUCT USED FOR UNKNOWN INDICATION
     Dosage: UNK
     Route: 058

REACTIONS (5)
  - Renal impairment [Recovered/Resolved]
  - Bile duct obstruction [Recovered/Resolved]
  - Pancreatic duct obstruction [Recovered/Resolved]
  - Dehydration [Recovered/Resolved]
  - Cholelithiasis [Recovered/Resolved]
